FAERS Safety Report 17775584 (Version 1)
Quarter: 2020Q2

REPORT INFORMATION
  Report Type: Spontaneous
  Country: US (occurrence: US)
  Receive Date: 20200513
  Receipt Date: 20200513
  Transmission Date: 20200714
  Serious: Yes (Death)
  Sender: FDA-Public Use
  Company Number: None

PATIENT
  Age: 43 Year
  Sex: Female
  Weight: 68 kg

DRUGS (6)
  1. AIMOVIG [Suspect]
     Active Substance: ERENUMAB-AOOE
     Indication: MIGRAINE PROPHYLAXIS
     Dosage: ?          OTHER FREQUENCY:EVERY 30 DAYS;?
     Route: 058
     Dates: start: 20190723, end: 20191227
  2. IBUPROFEN 400MG Q6H PRN [Concomitant]
  3. AMITRIPTYLINE 25MG QHS PRN [Concomitant]
  4. LISINOPRIL 20MG QD [Concomitant]
  5. CYCLOBENZAPRINE 10MG BID PRN [Concomitant]
  6. HYDROCODONE- ACTAMINPHEN 5-325MGQ4H PRN [Concomitant]

REACTIONS (10)
  - Subarachnoid haemorrhage [None]
  - Tachycardia [None]
  - Ruptured cerebral aneurysm [None]
  - Coma scale abnormal [None]
  - Cardiac arrest [None]
  - Fall [None]
  - Intraventricular haemorrhage [None]
  - Pneumonia [None]
  - Brain injury [None]
  - Blood pressure immeasurable [None]

NARRATIVE: CASE EVENT DATE: 20200102
